FAERS Safety Report 19240775 (Version 2)
Quarter: 2021Q2

REPORT INFORMATION
  Report Type: Report from Study
  Country: US (occurrence: US)
  Receive Date: 20210510
  Receipt Date: 20210607
  Transmission Date: 20210717
  Serious: Yes (Death, Hospitalization)
  Sender: FDA-Public Use
  Company Number: US-BAUSCH-BL-2021-004589

PATIENT
  Age: 79 Year
  Sex: Female

DRUGS (1)
  1. XIFAXAN [Suspect]
     Active Substance: RIFAXIMIN
     Indication: HEPATIC ENCEPHALOPATHY
     Dosage: STARTED MANY YEARS AGO
     Route: 048

REACTIONS (3)
  - Incoherent [Not Recovered/Not Resolved]
  - Illness [Unknown]
  - Death [Fatal]

NARRATIVE: CASE EVENT DATE: 202101
